FAERS Safety Report 23143610 (Version 1)
Quarter: 2023Q4

REPORT INFORMATION
  Report Type: Spontaneous
  Country: US (occurrence: None)
  Receive Date: 20231102
  Receipt Date: 20231102
  Transmission Date: 20240110
  Serious: Yes (Other)
  Sender: FDA-Public Use
  Company Number: None

PATIENT
  Age: 56 Year
  Sex: Female

DRUGS (2)
  1. MAVYRET [Suspect]
     Active Substance: GLECAPREVIR\PIBRENTASVIR
     Dosage: FREQUENCY : DAILY;?
  2. LISINOPRIL [Suspect]
     Active Substance: LISINOPRIL

REACTIONS (3)
  - Lip swelling [None]
  - Swollen tongue [None]
  - Therapy cessation [None]
